FAERS Safety Report 17297674 (Version 15)
Quarter: 2021Q4

REPORT INFORMATION
  Report Type: Report from Study
  Country: CA (occurrence: CA)
  Receive Date: 20200121
  Receipt Date: 20211124
  Transmission Date: 20220303
  Serious: Yes (Hospitalization, Other)
  Sender: FDA-Public Use
  Company Number: PHHY2015CA170994

PATIENT
  Age: 57 Year
  Sex: Female

DRUGS (14)
  1. SANDOSTATIN [Suspect]
     Active Substance: OCTREOTIDE ACETATE
     Indication: Carcinoid syndrome
     Dosage: UNK
     Route: 058
  2. SANDOSTATIN [Suspect]
     Active Substance: OCTREOTIDE ACETATE
     Indication: Neuroendocrine tumour
  3. SANDOSTATIN [Suspect]
     Active Substance: OCTREOTIDE ACETATE
  4. SANDOSTATIN LAR DEPOT [Suspect]
     Active Substance: OCTREOTIDE ACETATE
     Indication: Carcinoid tumour
     Dosage: UNK MG, Q4W  (10-30 MG, Q4 WEEKLY)
     Route: 030
     Dates: start: 201511
  5. SANDOSTATIN LAR DEPOT [Suspect]
     Active Substance: OCTREOTIDE ACETATE
     Indication: Neuroendocrine tumour
     Dosage: 30 MG, QMO (EVERY 4 WEEKS)
     Route: 030
     Dates: start: 20151216
  6. SANDOSTATIN LAR DEPOT [Suspect]
     Active Substance: OCTREOTIDE ACETATE
     Dosage: 10 MG, QMO (EVERY 4 WEEKS)
     Route: 030
  7. SANDOSTATIN LAR DEPOT [Suspect]
     Active Substance: OCTREOTIDE ACETATE
     Dosage: 20 MG, QMO (EVERY 4 WEEKS)
     Route: 030
     Dates: start: 20160229, end: 20160417
  8. SANDOSTATIN LAR DEPOT [Suspect]
     Active Substance: OCTREOTIDE ACETATE
     Dosage: 10 MG, QMO (EVERY 4 WEEKS)
     Route: 030
     Dates: start: 20170906
  9. SANDOSTATIN LAR DEPOT [Suspect]
     Active Substance: OCTREOTIDE ACETATE
     Dosage: 10 MG, QMO (EVERY 4 WEEKS)
     Route: 030
     Dates: start: 20190718
  10. SANDOSTATIN LAR DEPOT [Suspect]
     Active Substance: OCTREOTIDE ACETATE
     Dosage: 30 MG, Q4W
     Route: 030
     Dates: start: 20191017
  11. SANDOSTATIN LAR DEPOT [Suspect]
     Active Substance: OCTREOTIDE ACETATE
     Dosage: 10 MG, QMO (EVERY 4 WEEKS)
     Route: 030
     Dates: start: 20191217
  12. SANDOSTATIN LAR DEPOT [Suspect]
     Active Substance: OCTREOTIDE ACETATE
     Dosage: 30 MG, QMO (EVERY 4 WEEKS)
     Route: 030
  13. SANDOSTATIN LAR DEPOT [Suspect]
     Active Substance: OCTREOTIDE ACETATE
     Dosage: 20 MG, Q4W (FOR 54 WEEKS)
     Route: 030
     Dates: start: 20201124
  14. SANDOSTATIN LAR DEPOT [Suspect]
     Active Substance: OCTREOTIDE ACETATE
     Dosage: 20 MG, QMO (4 WEEKS)
     Route: 030
     Dates: start: 20201215

REACTIONS (51)
  - Weight decreased [Unknown]
  - Gastrointestinal obstruction [Unknown]
  - Abdominal pain upper [Unknown]
  - Vomiting [Unknown]
  - Body temperature decreased [Unknown]
  - Starvation [Unknown]
  - Tachycardia [Recovered/Resolved]
  - Tachycardia [Recovered/Resolved]
  - Intestinal obstruction [Recovered/Resolved]
  - Intestinal obstruction [Recovered/Resolved]
  - Abdominal distension [Recovered/Resolved]
  - Metastases to lymph nodes [Unknown]
  - Cancer pain [Not Recovered/Not Resolved]
  - Tumour compression [Not Recovered/Not Resolved]
  - Malignant neoplasm progression [Not Recovered/Not Resolved]
  - Blood pressure decreased [Recovered/Resolved]
  - Nausea [Recovered/Resolved]
  - Nasopharyngitis [Recovering/Resolving]
  - Malaise [Recovered/Resolved]
  - Influenza like illness [Unknown]
  - Blood pressure systolic increased [Unknown]
  - Arthralgia [Unknown]
  - White coat hypertension [Unknown]
  - Blood pressure increased [Unknown]
  - Illness [Unknown]
  - Neoplasm [Unknown]
  - Hormone level abnormal [Unknown]
  - Pain [Recovered/Resolved]
  - Pain [Recovered/Resolved]
  - Pain [Unknown]
  - Fall [Unknown]
  - Joint dislocation [Unknown]
  - Back pain [Unknown]
  - Back injury [Unknown]
  - Abdominal mass [Unknown]
  - Malaise [Unknown]
  - Feeding disorder [Unknown]
  - Oedema [Unknown]
  - Nausea [Recovered/Resolved]
  - Nausea [Unknown]
  - Diarrhoea [Unknown]
  - Faeces discoloured [Unknown]
  - Asthenia [Unknown]
  - Dizziness [Not Recovered/Not Resolved]
  - Abdominal pain lower [Unknown]
  - Abdominal distension [Recovered/Resolved]
  - Swelling [Unknown]
  - Erythema [Recovered/Resolved]
  - Peripheral swelling [Unknown]
  - Flatulence [Unknown]
  - Injection site pain [Unknown]

NARRATIVE: CASE EVENT DATE: 20151201
